FAERS Safety Report 5309102-9 (Version None)
Quarter: 2007Q2

REPORT INFORMATION
  Report Type: 
  Country: None (occurrence: None)
  Receive Date: 20070418
  Receipt Date: 20070404
  Transmission Date: 20071010
  Serious: Yes (Life-Threatening, Hospitalization)
  Sender: FDA-Public Use
  Company Number: 200711802

PATIENT
  Age: 8 Year
  Sex: Male
  Weight: 22.5 kg

DRUGS (5)
  1. CARIMUNE [Suspect]
     Indication: KAWASAKI'S DISEASE
     Dosage: 48 G DAILY IV
     Route: 042
     Dates: start: 20070301, end: 20070301
  2. ALBUMINAR-25 [Suspect]
     Dosage: IV
     Route: 042
     Dates: start: 20070301, end: 20070302
  3. ASPIRIN [Concomitant]
  4. FLUOXETINE [Concomitant]
  5. ACETAMINOPHEN [Concomitant]

REACTIONS (2)
  - ANTINUCLEAR ANTIBODY POSITIVE [None]
  - HEPATIC FAILURE [None]
